FAERS Safety Report 16449935 (Version 1)
Quarter: 2019Q2

REPORT INFORMATION
  Report Type: Spontaneous
  Country: US (occurrence: US)
  Receive Date: 20190619
  Receipt Date: 20190619
  Transmission Date: 20190711
  Serious: Yes (Other)
  Sender: FDA-Public Use
  Company Number: US-DRREDDYS-USA/USA/19/0110847

PATIENT
  Sex: Male

DRUGS (2)
  1. HEPARIN SODIUM. [Suspect]
     Active Substance: HEPARIN SODIUM
     Indication: VENTRICULAR ASSIST DEVICE INSERTION
  2. HEPARIN SODIUM. [Suspect]
     Active Substance: HEPARIN SODIUM
     Indication: VASCULAR GRAFT
     Route: 065

REACTIONS (2)
  - Heparin-induced thrombocytopenia [Unknown]
  - Cardiogenic shock [Unknown]
